FAERS Safety Report 6255102-4 (Version None)
Quarter: 2009Q3

REPORT INFORMATION
  Report Type: 
  Country: None (occurrence: None)
  Receive Date: 20090702
  Receipt Date: 20090622
  Transmission Date: 20100115
  Serious: Yes (Disabling, Other)
  Sender: FDA-Public Use
  Company Number: US-PFIZER INC-2009204879

PATIENT
  Sex: Female

DRUGS (3)
  1. LIPITOR [Suspect]
     Indication: BLOOD CHOLESTEROL INCREASED
     Dosage: UNK
     Dates: start: 20090101, end: 20090101
  2. TYLENOL (CAPLET) [Suspect]
     Dosage: UNK
  3. ELAVIL [Suspect]
     Dosage: UNK

REACTIONS (2)
  - GAIT DISTURBANCE [None]
  - MYALGIA [None]
